FAERS Safety Report 19943564 (Version 1)
Quarter: 2021Q4

REPORT INFORMATION
  Report Type: Report from Study
  Country: ES (occurrence: ES)
  Receive Date: 20211011
  Receipt Date: 20211011
  Transmission Date: 20220303
  Serious: Yes (Other)
  Sender: FDA-Public Use
  Company Number: ES-SA-SAC20210603001222

PATIENT
  Age: 77 Year
  Sex: Female
  Weight: 66 kg

DRUGS (5)
  1. FUROSEMIDE [Suspect]
     Active Substance: FUROSEMIDE
     Indication: Cardiac disorder
     Dosage: 1 DF, QD
     Route: 048
  2. INSULIN GLARGINE [Suspect]
     Active Substance: INSULIN GLARGINE
     Indication: Type 2 diabetes mellitus
     Dosage: 49 IU, QD
     Route: 058
     Dates: start: 20180320
  3. INSULIN GLARGINE [Suspect]
     Active Substance: INSULIN GLARGINE
     Dosage: DOSE INCREASED
     Route: 058
  4. METILDIGOXIN [Suspect]
     Active Substance: METILDIGOXIN
     Indication: Cardiac disorder
     Dosage: 1 DF (EVERY DAY EXCEPT WEDNESDAY AND SUNDAY)
     Route: 048
  5. CANAGLIFLOZIN\METFORMIN HYDROCHLORIDE [Concomitant]
     Active Substance: CANAGLIFLOZIN\METFORMIN HYDROCHLORIDE
     Indication: Type 2 diabetes mellitus
     Dosage: 1 DOSAGE FORM, QD
     Route: 048

REACTIONS (6)
  - Depressed mood [Unknown]
  - Renal disorder [Unknown]
  - Decreased appetite [Unknown]
  - Cardiac disorder [Unknown]
  - Blood glucose abnormal [Unknown]
  - Weight decreased [Unknown]

NARRATIVE: CASE EVENT DATE: 20210101
